FAERS Safety Report 5735464-4 (Version None)
Quarter: 2008Q2

REPORT INFORMATION
  Report Type: 
  Country: None (occurrence: None)
  Receive Date: 20080508
  Receipt Date: 20080502
  Transmission Date: 20081010
  Serious: Yes (Hospitalization)
  Sender: FDA-Public Use
  Company Number: 2008-02813

PATIENT
  Sex: Female

DRUGS (7)
  1. TRAMADOL HCL [Suspect]
     Indication: LOWER LIMB FRACTURE
  2. TRAMADOL HCL [Suspect]
     Indication: PAIN
  3. MEPERIDINE HCL [Suspect]
     Indication: LOWER LIMB FRACTURE
     Dosage: INTRAVENOUS
     Route: 042
  4. MEPERIDINE HCL [Suspect]
     Indication: PAIN
     Dosage: INTRAVENOUS
     Route: 042
  5. ACETAMINOPHEN [Concomitant]
  6. GABAPENTIN [Concomitant]
  7. CONTRACEPTIVE PILL [Concomitant]

REACTIONS (2)
  - DRUG INTERACTION [None]
  - SEROTONIN SYNDROME [None]
